FAERS Safety Report 7613753-6 (Version None)
Quarter: 2011Q3

REPORT INFORMATION
  Report Type: 
  Country: None (occurrence: None)
  Receive Date: 20110708
  Receipt Date: 20110628
  Transmission Date: 20111222
  Serious: Yes (Other)
  Sender: FDA-Public Use
  Company Number: 2011140809

PATIENT
  Age: 54 Year
  Sex: Male

DRUGS (3)
  1. FRAGMIN [Suspect]
     Indication: LIMB IMMOBILISATION
     Dosage: 2500 IU, 1X/DAY, SUBCUTANEOUS
     Route: 058
     Dates: start: 20110513, end: 20110620
  2. DOXAZOSIN MESYLATE [Concomitant]
  3. CELEBREX [Concomitant]

REACTIONS (5)
  - VENTRICULAR ARRHYTHMIA [None]
  - PALPITATIONS [None]
  - BRADYCARDIA [None]
  - VENTRICULAR TACHYCARDIA [None]
  - HYPERKALAEMIA [None]
